FAERS Safety Report 8596814-7 (Version None)
Quarter: 2012Q3

REPORT INFORMATION
  Report Type: 
  Country: None (occurrence: None)
  Receive Date: 20120815
  Receipt Date: 20120810
  Transmission Date: 20120928
  Serious: Yes (Life-Threatening, Hospitalization, Other)
  Sender: FDA-Public Use
  Company Number: FR-ABBOTT-12P-056-0967294-00

PATIENT
  Sex: Male

DRUGS (19)
  1. OLANZAPINE [Suspect]
     Indication: PRODUCT USED FOR UNKNOWN INDICATION
     Route: 048
     Dates: start: 20120101
  2. CLARITHROMYCIN [Suspect]
     Indication: PRODUCT USED FOR UNKNOWN INDICATION
     Dosage: DF 50MG/ML
     Route: 048
     Dates: start: 20120711
  3. BACTRIM [Suspect]
     Indication: PRODUCT USED FOR UNKNOWN INDICATION
     Route: 048
     Dates: start: 20120710
  4. AMIKACIN [Suspect]
     Indication: PRODUCT USED FOR UNKNOWN INDICATION
     Dosage: 900 MG DAILY
     Route: 042
     Dates: start: 20120711
  5. ACETAMINOPHEN [Suspect]
     Indication: PRODUCT USED FOR UNKNOWN INDICATION
     Dosage: DF 10MG/ML
     Route: 042
     Dates: start: 20120710
  6. PERIKABIVEN (PARENTERAL NUTRITION) [Suspect]
     Indication: PRODUCT USED FOR UNKNOWN INDICATION
     Dates: start: 20120710
  7. RIFABUTIN [Suspect]
     Indication: PRODUCT USED FOR UNKNOWN INDICATION
     Route: 048
     Dates: start: 20120711
  8. CERNEVIT-12 [Suspect]
     Indication: PRODUCT USED FOR UNKNOWN INDICATION
     Dates: start: 20120710, end: 20120716
  9. NEFOPAM [Suspect]
     Indication: PRODUCT USED FOR UNKNOWN INDICATION
     Route: 042
     Dates: start: 20120710, end: 20120716
  10. VIRAMUNE [Suspect]
     Indication: HIV INFECTION
     Dates: start: 20120301, end: 20120501
  11. MYAMBUTOL [Suspect]
     Indication: PRODUCT USED FOR UNKNOWN INDICATION
     Route: 048
     Dates: start: 20120711
  12. ADAVAT [Concomitant]
     Indication: LUMBAR PUNCTURE
     Dates: start: 20120725, end: 20120725
  13. POTASSIUM CHLORIDE [Suspect]
     Indication: PRODUCT USED FOR UNKNOWN INDICATION
     Route: 048
     Dates: start: 20120710
  14. FOLIC ACID [Suspect]
     Indication: PRODUCT USED FOR UNKNOWN INDICATION
     Route: 048
     Dates: start: 20120710
  15. ISENTRESS [Suspect]
     Indication: HIV INFECTION
     Route: 048
     Dates: start: 20120501
  16. KALETRA [Suspect]
     Indication: HIV INFECTION
     Dosage: DF 80/20 MG
     Route: 048
     Dates: start: 20120301
  17. PRAZEPAM [Suspect]
     Indication: PRODUCT USED FOR UNKNOWN INDICATION
     Route: 048
     Dates: start: 20120710
  18. TRUVADA [Suspect]
     Indication: HIV INFECTION
     Route: 048
     Dates: start: 20120301
  19. PROPOFOL [Concomitant]
     Indication: ENDOTRACHEAL INTUBATION
     Dates: start: 20120725, end: 20120725

REACTIONS (40)
  - HEPATOSPLENOMEGALY [None]
  - FAECAL INCONTINENCE [None]
  - RENAL FAILURE [None]
  - WHITE BLOOD CELL DISORDER [None]
  - CEREBRAL ATROPHY [None]
  - HEPATIC FIBROSIS [None]
  - IMMUNE RECONSTITUTION SYNDROME [None]
  - THROMBOCYTOPENIA [None]
  - REFUSAL OF TREATMENT BY PATIENT [None]
  - COMA SCALE ABNORMAL [None]
  - OXYGEN SATURATION DECREASED [None]
  - PYREXIA [None]
  - RESPIRATORY TRACT CONGESTION [None]
  - HEPATITIS CHOLESTATIC [None]
  - MALNUTRITION [None]
  - ANAEMIA [None]
  - MYCOBACTERIAL INFECTION [None]
  - APATHY [None]
  - HYPONATRAEMIA [None]
  - HYPOPROTEINAEMIA [None]
  - BRAIN ABSCESS [None]
  - ENCEPHALITIC INFECTION [None]
  - HEPATOTOXICITY [None]
  - CONFUSIONAL STATE [None]
  - HEART RATE INCREASED [None]
  - CONVULSION [None]
  - COMA [None]
  - GENERAL PHYSICAL HEALTH DETERIORATION [None]
  - NERVOUS SYSTEM DISORDER [None]
  - AGITATION [None]
  - SNORING [None]
  - NECROTISING GRANULOMATOUS LYMPHADENITIS [None]
  - EYE MOVEMENT DISORDER [None]
  - DIARRHOEA [None]
  - DEPRESSED LEVEL OF CONSCIOUSNESS [None]
  - ENCEPHALOPATHY [None]
  - HEPATIC ISCHAEMIA [None]
  - URINARY INCONTINENCE [None]
  - HEART SOUNDS ABNORMAL [None]
  - INTRACRANIAL PRESSURE INCREASED [None]
